FAERS Safety Report 26159978 (Version 1)
Quarter: 2025Q4

REPORT INFORMATION
  Report Type: Report from Study
  Country: CA (occurrence: CA)
  Receive Date: 20251216
  Receipt Date: 20251216
  Transmission Date: 20260117
  Serious: Yes (Other)
  Sender: NOVARTIS
  Company Number: CA-002147023-NVSC2025CA191016

PATIENT
  Age: 58 Year
  Sex: Male

DRUGS (1)
  1. LEQVIO [Suspect]
     Active Substance: INCLISIRAN SODIUM
     Indication: Product used for unknown indication
     Dosage: 284 MG (MILLIGRAM) / 1.5 ML (MILLILITER), OTHER (BASELINE, 3 MONTH THEN 6 MONTH THEREAFTER)
     Route: 058
     Dates: start: 20230920

REACTIONS (2)
  - Diabetes mellitus [Unknown]
  - Blood pressure abnormal [Unknown]
